FAERS Safety Report 4502636-6 (Version None)
Quarter: 2004Q4

REPORT INFORMATION
  Report Type: 
  Country: None (occurrence: None)
  Receive Date: 20040928
  Receipt Date: 20040706
  Transmission Date: 20050328
  Serious: No
  Sender: FDA-Public Use
  Company Number: 04P-163-0262624-00

PATIENT
  Age: 63 Year
  Sex: Female
  Weight: 102.5129 kg

DRUGS (11)
  1. HUMIRA [Suspect]
     Indication: RHEUMATOID ARTHRITIS
     Dosage: 40 MG, SUBCUTANEOUS
     Route: 058
     Dates: start: 20040301, end: 20040401
  2. HUMIRA [Suspect]
     Indication: RHEUMATOID ARTHRITIS
     Dosage: 40 MG, SUBCUTANEOUS
     Route: 058
     Dates: start: 20040519
  3. ESOMEPRAZOLE [Concomitant]
  4. CELECOXIB [Concomitant]
  5. ZOCOR [Concomitant]
  6. AVANDAMET [Concomitant]
  7. LOTREL [Concomitant]
  8. TIMOLOL MALEATE [Concomitant]
  9. KARVEA HCT [Concomitant]
  10. RALOXIFENE HCL [Concomitant]
  11. PHOLTEX [Concomitant]

REACTIONS (7)
  - COUGH [None]
  - DYSPNOEA [None]
  - HYPOAESTHESIA [None]
  - OEDEMA PERIPHERAL [None]
  - PARAESTHESIA [None]
  - PRODUCTIVE COUGH [None]
  - WHEEZING [None]
